FAERS Safety Report 10460027 (Version 1)
Quarter: 2014Q3

REPORT INFORMATION
  Report Type: Spontaneous
  Country: FR (occurrence: FR)
  Receive Date: 20140917
  Receipt Date: 20140917
  Transmission Date: 20150326
  Serious: Yes (Hospitalization)
  Sender: FDA-Public Use
  Company Number: FR-PFIZER INC-2014251851

PATIENT
  Age: 7 Year
  Sex: Male
  Weight: 20 kg

DRUGS (3)
  1. DOLIPRANE [Concomitant]
     Active Substance: ACETAMINOPHEN
     Dosage: UNKNOWN
  2. MAXILASE [Concomitant]
     Active Substance: PANCRELIPASE
     Dosage: UNKNOWN
  3. ADVIL [Suspect]
     Active Substance: IBUPROFEN
     Indication: PAROTITIS
     Dosage: UNK
     Route: 048
     Dates: start: 20140413, end: 20140416

REACTIONS (2)
  - Cellulitis [Recovered/Resolved]
  - Streptococcus test positive [Unknown]

NARRATIVE: CASE EVENT DATE: 20140416
